FAERS Safety Report 12406878 (Version 2)
Quarter: 2016Q2

REPORT INFORMATION
  Report Type: Spontaneous
  Country: MA (occurrence: FR)
  Receive Date: 20160526
  Receipt Date: 20160531
  Transmission Date: 20160815
  Serious: Yes (Other)
  Sender: FDA-Public Use
  Company Number: MA-IPSEN BIOPHARMACEUTICALS, INC.-2016-04583

PATIENT
  Age: 58 Year

DRUGS (1)
  1. SOMATULINE AUTOGEL [Suspect]
     Active Substance: LANREOTIDE ACETATE
     Indication: PITUITARY TUMOUR BENIGN
     Dosage: NOT REPORTED
     Route: 065

REACTIONS (5)
  - Abdominal pain upper [Recovered/Resolved]
  - Cholestasis [Recovered/Resolved]
  - Pancreatitis acute [Recovered/Resolved]
  - Bile duct stone [Recovered/Resolved]
  - Hyperlipasaemia [Recovered/Resolved]
